FAERS Safety Report 19073377 (Version 3)
Quarter: 2024Q4

REPORT INFORMATION
  Report Type: Spontaneous
  Country: US (occurrence: US)
  Receive Date: 20210330
  Receipt Date: 20241028
  Transmission Date: 20250115
  Serious: Yes (Other)
  Sender: PFIZER
  Company Number: US-MLMSERVICE-20210312-2779479-1

PATIENT
  Age: 71 Year
  Sex: Female

DRUGS (2)
  1. LEVOFLOXACIN [Interacting]
     Active Substance: LEVOFLOXACIN
     Dosage: 750 MG, 1X/DAY
  2. ANASTROZOLE [Interacting]
     Active Substance: ANASTROZOLE
     Indication: Breast cancer
     Dosage: UNK

REACTIONS (4)
  - Drug interaction [Unknown]
  - Drug level increased [Unknown]
  - Ventricular tachycardia [Unknown]
  - Electrocardiogram QT prolonged [Unknown]
